FAERS Safety Report 8959504 (Version 1)
Quarter: 2012Q4

REPORT INFORMATION
  Report Type: 
  Country: US (occurrence: US)
  Receive Date: 20121212
  Receipt Date: 20121212
  Transmission Date: 20130627
  Serious: Yes (Other)
  Sender: FDA-Public Use
  Company Number: US-009507513-1212USA003058

PATIENT
  Sex: Male

DRUGS (1)
  1. SYLATRON [Suspect]
     Indication: MALIGNANT MELANOMA STAGE III
     Dosage: once, qw
     Dates: start: 201112

REACTIONS (6)
  - Weight increased [Not Recovered/Not Resolved]
  - Injection site pallor [Not Recovered/Not Resolved]
  - Burning sensation [Recovered/Resolved]
  - Arthralgia [Not Recovered/Not Resolved]
  - Headache [Recovered/Resolved]
  - Fatigue [Recovered/Resolved]
